FAERS Safety Report 7440328-4 (Version None)
Quarter: 2011Q2

REPORT INFORMATION
  Report Type: 
  Country: None (occurrence: None)
  Receive Date: 20110427
  Receipt Date: 20110426
  Transmission Date: 20111010
  Serious: Yes (Hospitalization, Other)
  Sender: FDA-Public Use
  Company Number: JP-PFIZER INC-2011087502

PATIENT
  Age: 68 Year
  Sex: Female

DRUGS (5)
  1. RIMATIL [Concomitant]
     Dosage: UNK
     Route: 048
     Dates: end: 20110410
  2. PREDONINE [Concomitant]
     Dosage: UNK
     Route: 048
  3. OMEPRAL [Concomitant]
     Route: 048
  4. AZULFIDINE [Suspect]
     Indication: RHEUMATOID ARTHRITIS
     Dosage: UNK
     Route: 048
     Dates: start: 20110401, end: 20110410
  5. LOXONIN [Concomitant]
     Route: 048

REACTIONS (5)
  - INTERSTITIAL LUNG DISEASE [None]
  - LIVER DISORDER [None]
  - LIVER FUNCTION TEST ABNORMAL [None]
  - DRUG ERUPTION [None]
  - BONE MARROW FAILURE [None]
